FAERS Safety Report 5867405-3 (Version None)
Quarter: 2008Q3

REPORT INFORMATION
  Report Type: 
  Country: None (occurrence: None)
  Receive Date: 20080902
  Receipt Date: 20080829
  Transmission Date: 20090109
  Serious: Yes (Hospitalization)
  Sender: FDA-Public Use
  Company Number: PHHY2008JP12596

PATIENT
  Sex: Female
  Weight: 72 kg

DRUGS (7)
  1. TEGRETOL [Suspect]
     Indication: EPILEPSY
     Dosage: 400 MG DAILY
     Route: 048
  2. TEGRETOL [Suspect]
     Dosage: 200 MG DAILY
     Route: 048
  3. TEGRETOL [Suspect]
     Dosage: 3 DF/DAY
     Route: 048
     Dates: start: 19960805
  4. TEGRETOL [Suspect]
     Dosage: UNK
     Route: 048
     Dates: end: 20080712
  5. TAGAMET [Concomitant]
     Indication: ABDOMINAL PAIN UPPER
     Dosage: 2 DF, UNK
     Route: 048
     Dates: start: 20080614, end: 20080615
  6. BUSCOPAN [Concomitant]
     Indication: ABDOMINAL PAIN UPPER
     Dosage: 2 DF, UNK
     Route: 048
     Dates: start: 20080614, end: 20080615
  7. LOXONIN [Concomitant]
     Dosage: UNK

REACTIONS (9)
  - ABDOMINAL PAIN UPPER [None]
  - ARTHRALGIA [None]
  - COLLAGEN DISORDER [None]
  - ERYTHEMA [None]
  - NEUTROPHIL COUNT INCREASED [None]
  - PAIN [None]
  - PYREXIA [None]
  - RASH [None]
  - RED BLOOD CELL SEDIMENTATION RATE INCREASED [None]
